FAERS Safety Report 6707928-8 (Version None)
Quarter: 2010Q2

REPORT INFORMATION
  Report Type: 
  Country: None (occurrence: None)
  Receive Date: 20100503
  Receipt Date: 20100419
  Transmission Date: 20101027
  Serious: Yes (Hospitalization)
  Sender: FDA-Public Use
  Company Number: DE-MYLANLABS-2010S1006782

PATIENT
  Age: 55 Year
  Sex: Male
  Weight: 53 kg

DRUGS (3)
  1. DOXEPIN DURA 25 MG [Suspect]
     Indication: DEPRESSION
     Dosage: TAGESDOSIERUNG 25-0-100 MG
     Route: 048
     Dates: start: 20090401
  2. THIAMAZOLE [Concomitant]
     Indication: SECONDARY HYPERTHYROIDISM
     Route: 048
     Dates: start: 20080101
  3. FERROUS SULFATE TAB [Concomitant]
     Indication: MICROCYTIC ANAEMIA
     Route: 048
     Dates: start: 20070101

REACTIONS (1)
  - PRESYNCOPE [None]
